FAERS Safety Report 16895727 (Version 1)
Quarter: 2019Q4

REPORT INFORMATION
  Report Type: Spontaneous
  Country: US (occurrence: US)
  Receive Date: 20190814
  Receipt Date: 20190814
  Transmission Date: 20200122
  Serious: Yes (Disabling)
  Sender: FDA-Public Use
  Company Number: None

PATIENT
  Age: 63 Year
  Sex: Female
  Weight: 124.28 kg

DRUGS (14)
  1. HYDROXYZINE [Concomitant]
     Active Substance: HYDROXYZINE HYDROCHLORIDE
  2. L-CYSTEINE [Concomitant]
     Active Substance: CYSTEINE
  3. ASPIRIN. [Concomitant]
     Active Substance: ASPIRIN
  4. TRIAMCINOLONE OINT [Concomitant]
  5. NYSTATIN CREAM [Concomitant]
     Active Substance: NYSTATIN
  6. CLOBETASOL OINT [Concomitant]
  7. FLEXERIL [Concomitant]
     Active Substance: CYCLOBENZAPRINE HYDROCHLORIDE
  8. PRENATOL VIT. [Concomitant]
  9. TYLENOL [Concomitant]
     Active Substance: ACETAMINOPHEN
  10. CARVEDILOL. [Concomitant]
     Active Substance: CARVEDILOL
  11. N-ACELYL [Concomitant]
  12. LOSARTAN POTASSIUM TABLETS [Suspect]
     Active Substance: LOSARTAN POTASSIUM
     Indication: HYPERTENSION
     Dosage: ?          QUANTITY:100 MG MILLIGRAM(S);?
     Route: 048
     Dates: start: 201211, end: 201812
  13. TRAMADOL. [Concomitant]
     Active Substance: TRAMADOL
  14. SARNA LOTION [Concomitant]

REACTIONS (5)
  - Scar [None]
  - Skin discolouration [None]
  - Pain [None]
  - Pruritus [None]
  - Recalled product administered [None]
